FAERS Safety Report 7687095-7 (Version None)
Quarter: 2011Q3

REPORT INFORMATION
  Report Type: 
  Country: None (occurrence: None)
  Receive Date: 20110816
  Receipt Date: 20110804
  Transmission Date: 20111222
  Serious: Yes (Other)
  Sender: FDA-Public Use
  Company Number: PHHY2011JP71667

PATIENT
  Sex: Female
  Weight: 52 kg

DRUGS (6)
  1. NEXAVAR [Concomitant]
     Indication: METASTATIC RENAL CELL CARCINOMA
     Dosage: 800 MG
     Route: 048
     Dates: start: 20100216, end: 20100311
  2. SUNITINIB MALATE [Concomitant]
     Indication: METASTATIC RENAL CELL CARCINOMA
     Dosage: 37.5 MG
     Route: 048
     Dates: start: 20100414, end: 20101029
  3. AFINITOR [Suspect]
     Indication: METASTATIC RENAL CELL CARCINOMA
     Dosage: 10 MG, DAILY
     Route: 048
     Dates: start: 20101118
  4. ZOMETA [Concomitant]
     Indication: METASTASES TO BONE
     Dosage: 4 MG, UNK
     Route: 041
     Dates: start: 20100423
  5. INTERFERON ALFA [Concomitant]
     Indication: METASTATIC RENAL CELL CARCINOMA
     Dosage: UNK UKN, UNK
     Dates: start: 20090304, end: 20100201
  6. OXYCONTIN [Concomitant]
     Dosage: 30 MG
     Route: 048
     Dates: start: 20101122

REACTIONS (7)
  - BLOOD LACTATE DEHYDROGENASE INCREASED [None]
  - SKIN DISORDER [None]
  - CANCER PAIN [None]
  - ASPARTATE AMINOTRANSFERASE INCREASED [None]
  - PYREXIA [None]
  - TUMOUR LYSIS SYNDROME [None]
  - C-REACTIVE PROTEIN INCREASED [None]
